FAERS Safety Report 6938960-7 (Version None)
Quarter: 2010Q3

REPORT INFORMATION
  Report Type: 
  Country: None (occurrence: None)
  Receive Date: 20100824
  Receipt Date: 20100814
  Transmission Date: 20110219
  Serious: Yes (Other)
  Sender: FDA-Public Use
  Company Number: GXKR2010GB09122

PATIENT
  Age: 21 Year
  Sex: Male

DRUGS (2)
  1. RISPERIDONE [Suspect]
     Indication: SCHIZOPHRENIA
     Dosage: 6 MG, QD
     Route: 048
     Dates: start: 20100310, end: 20100810
  2. QUETIAPINE [Concomitant]
     Indication: SCHIZOPHRENIA
     Dosage: UNK
     Route: 065
     Dates: start: 20100801

REACTIONS (4)
  - EXCESSIVE EYE BLINKING [None]
  - MUSCLE TWITCHING [None]
  - SELF ESTEEM DECREASED [None]
  - SOCIAL AVOIDANT BEHAVIOUR [None]
